FAERS Safety Report 7112308-X (Version None)
Quarter: 2010Q4

REPORT INFORMATION
  Report Type: 
  Country: None (occurrence: None)
  Receive Date: 20101119
  Receipt Date: 20100909
  Transmission Date: 20110411
  Serious: No
  Sender: FDA-Public Use
  Company Number: A0867643A

PATIENT
  Age: 74 Year
  Sex: Male

DRUGS (5)
  1. AVODART [Suspect]
     Indication: BENIGN PROSTATIC HYPERPLASIA
     Dosage: .5MG PER DAY
     Route: 048
  2. TOPROL-XL [Concomitant]
  3. ZOCOR [Concomitant]
  4. UROXATRAL [Concomitant]
  5. UNKNOWN MEDICATION [Concomitant]

REACTIONS (2)
  - HEART RATE DECREASED [None]
  - PALPITATIONS [None]
